FAERS Safety Report 16022527 (Version 2)
Quarter: 2019Q2

REPORT INFORMATION
  Report Type: Spontaneous
  Country: CA (occurrence: CA)
  Receive Date: 20190301
  Receipt Date: 20190618
  Transmission Date: 20190711
  Serious: Yes (Hospitalization, Other)
  Sender: FDA-Public Use
  Company Number: CA-AUROBINDO-AUR-APL-2019-010056

PATIENT

DRUGS (23)
  1. ARIPIPRAZOLE. [Suspect]
     Active Substance: ARIPIPRAZOLE
     Indication: CATATONIA
     Dosage: UNK
     Route: 065
  2. OLANZAPINE. [Suspect]
     Active Substance: OLANZAPINE
     Indication: CATATONIA
  3. RISPERIDONE. [Suspect]
     Active Substance: RISPERIDONE
     Indication: SCHIZOPHRENIA
     Dosage: 6 MILLIGRAM
     Route: 065
  4. ARIPIPRAZOLE. [Suspect]
     Active Substance: ARIPIPRAZOLE
     Indication: PSYCHOTIC SYMPTOM
     Dosage: 45 MILLIGRAM, DAILY
     Route: 065
  5. CLOZAPINE. [Suspect]
     Active Substance: CLOZAPINE
     Indication: SCHIZOPHRENIA
     Dosage: 12.5 MILLIGRAM, 2 EVERY 1 DAY
     Route: 065
  6. OLANZAPINE. [Suspect]
     Active Substance: OLANZAPINE
     Indication: SCHIZOPHRENIA
     Dosage: 30 MILLIGRAM
     Route: 065
  7. LORAZEPAM. [Suspect]
     Active Substance: LORAZEPAM
     Indication: CATATONIA
     Dosage: 22 MILLIGRAM
     Route: 065
  8. ARIPIPRAZOLE. [Suspect]
     Active Substance: ARIPIPRAZOLE
     Indication: SCHIZOPHRENIA
     Dosage: 20 MILLIGRAM
     Route: 065
  9. OLANZAPINE. [Suspect]
     Active Substance: OLANZAPINE
     Indication: PSYCHOTIC SYMPTOM
     Dosage: UNK
     Route: 065
  10. GLICLAZIDE [Suspect]
     Active Substance: GLICLAZIDE
     Indication: TYPE 2 DIABETES MELLITUS
     Dosage: 160 MILLIGRAM, ONCE A DAY
     Route: 065
  11. RISPERIDONE. [Suspect]
     Active Substance: RISPERIDONE
     Indication: CATATONIA
  12. ABILIFY [Suspect]
     Active Substance: ARIPIPRAZOLE
     Indication: SCHIZOPHRENIA
     Dosage: 20.0 MILLIGRAM
     Route: 065
  13. CLOZAPINE. [Suspect]
     Active Substance: CLOZAPINE
     Indication: AGGRESSION
     Dosage: 25 MILLIGRAM 1 EVERY 5 DAYS
     Route: 065
  14. CLOZAPINE. [Suspect]
     Active Substance: CLOZAPINE
     Dosage: 525 MILLIGRAM
     Route: 065
  15. ABILIFY [Suspect]
     Active Substance: ARIPIPRAZOLE
     Indication: CATATONIA
  16. SITAGLIPTIN [Suspect]
     Active Substance: SITAGLIPTIN
     Indication: TYPE 2 DIABETES MELLITUS
     Dosage: 100.0 MILLIGRAM, ONCE A DAY
     Route: 065
  17. RISPERIDONE. [Suspect]
     Active Substance: RISPERIDONE
     Indication: PSYCHOTIC SYMPTOM
     Dosage: UNK
     Route: 065
  18. METFORMIN [Suspect]
     Active Substance: METFORMIN HYDROCHLORIDE
     Indication: TYPE 2 DIABETES MELLITUS
     Dosage: 1000 MILLIGRAM, TWO TIMES A DAY
     Route: 065
  19. CLOZAPINE. [Suspect]
     Active Substance: CLOZAPINE
     Indication: CATATONIA
     Dosage: 12.5 MILLIGRAM, ONCE A DAY
     Route: 065
  20. CLOZAPINE. [Suspect]
     Active Substance: CLOZAPINE
     Dosage: 200 MILLIGRAM
     Route: 065
  21. CLOZAPINE. [Suspect]
     Active Substance: CLOZAPINE
     Dosage: 25.0 MILLIGRAM
     Route: 065
  22. JANUVIA [Suspect]
     Active Substance: SITAGLIPTIN PHOSPHATE
     Indication: TYPE 2 DIABETES MELLITUS
     Dosage: 100 MILLIGRAM, ONCE A DAY
     Route: 065
  23. ABILIFY [Suspect]
     Active Substance: ARIPIPRAZOLE
     Indication: PSYCHOTIC SYMPTOM
     Dosage: 45.0 MILLIGRAM, ONCE A DAY
     Route: 065

REACTIONS (5)
  - Drug ineffective [Unknown]
  - Sinus tachycardia [Unknown]
  - Product use in unapproved indication [Unknown]
  - Therapeutic product effect incomplete [Unknown]
  - Salivary hypersecretion [Unknown]
